FAERS Safety Report 7868211-0 (Version None)
Quarter: 2011Q4

REPORT INFORMATION
  Report Type: 
  Country: None (occurrence: None)
  Receive Date: 20111028
  Receipt Date: 20111026
  Transmission Date: 20120403
  Serious: Yes (Hospitalization, Other)
  Sender: FDA-Public Use
  Company Number: US-MERCK-1108USA01355

PATIENT
  Age: 59 Year
  Sex: Female

DRUGS (2)
  1. FOSAMAX [Suspect]
     Route: 048
     Dates: start: 19981101, end: 19990101
  2. FOSAMAX [Suspect]
     Indication: OSTEOPOROSIS
     Route: 048
     Dates: start: 19990101, end: 20100301

REACTIONS (12)
  - PURULENT DISCHARGE [None]
  - JAW DISORDER [None]
  - EXPOSED BONE IN JAW [None]
  - HYSTERECTOMY [None]
  - NEOPLASM MALIGNANT [None]
  - ORAL DISORDER [None]
  - OSTEONECROSIS OF JAW [None]
  - TOOTH DISORDER [None]
  - ORAL INFECTION [None]
  - IMPAIRED HEALING [None]
  - BONE DISORDER [None]
  - FEMUR FRACTURE [None]
